FAERS Safety Report 4526914-X (Version None)
Quarter: 2004Q4

REPORT INFORMATION
  Report Type: 
  Country: None (occurrence: None)
  Receive Date: 20041213
  Receipt Date: 20041207
  Transmission Date: 20050328
  Serious: Yes (Death, Other)
  Sender: FDA-Public Use
  Company Number: 2004-11-0181

PATIENT
  Age: 41 Year
  Sex: Female

DRUGS (4)
  1. INTRON A [Suspect]
     Indication: CHRONIC MYELOID LEUKAEMIA
     Dosage: 5 MIU
  2. ROFERON-A [Suspect]
     Indication: CHRONIC MYELOID LEUKAEMIA
     Dosage: 9 MIU
  3. INTERFERON ALFA INJECTABLE [Suspect]
     Indication: CHRONIC MYELOID LEUKAEMIA
     Dosage: 3 MIU
  4. HYDROXYUREA [Concomitant]

REACTIONS (14)
  - ASTHENIA [None]
  - DISEASE PROGRESSION [None]
  - GRAND MAL CONVULSION [None]
  - HAEMOLYTIC ANAEMIA [None]
  - HAEMORRHAGE INTRACRANIAL [None]
  - HEPATOMEGALY [None]
  - HYPERPLASIA [None]
  - LUNG INFECTION [None]
  - MUCOSAL DISCOLOURATION [None]
  - OCULAR ICTERUS [None]
  - PLATELET COUNT INCREASED [None]
  - RESPIRATORY FAILURE [None]
  - SEPSIS [None]
  - SPLENOMEGALY [None]
